FAERS Safety Report 21950569 (Version 1)
Quarter: 2023Q1

REPORT INFORMATION
  Report Type: Spontaneous
  Country: US (occurrence: None)
  Receive Date: 20230202
  Receipt Date: 20230202
  Transmission Date: 20230417
  Serious: Yes (Hospitalization)
  Sender: FDA-Public Use
  Company Number: None

PATIENT
  Age: 86 Year
  Sex: Female

DRUGS (4)
  1. TERIPARATIDE [Suspect]
     Active Substance: TERIPARATIDE
     Indication: Osteoporosis
     Dosage: OTHER STRENGTH : 620MCG/2.48ML;?OTHER QUANTITY : 620MCG/2.48ML;?FREQUENCY : DAILY;?
     Route: 058
     Dates: start: 20220114
  2. CLONAZEP ODT TAB [Concomitant]
  3. MYRBETRIQ TAB [Concomitant]
  4. PROTONIX TAB [Concomitant]

REACTIONS (7)
  - Urinary tract infection [None]
  - Diarrhoea [None]
  - Constipation [None]
  - Hypertension [None]
  - Pneumonia [None]
  - Chronic obstructive pulmonary disease [None]
  - Troponin increased [None]

NARRATIVE: CASE EVENT DATE: 20221101
